FAERS Safety Report 23313750 (Version 1)
Quarter: 2023Q4

REPORT INFORMATION
  Report Type: Spontaneous
  Country: SE (occurrence: SE)
  Receive Date: 20231219
  Receipt Date: 20231219
  Transmission Date: 20240109
  Serious: Yes (Death, Hospitalization)
  Sender: FDA-Public Use
  Company Number: None

PATIENT
  Age: 65 Year
  Sex: Male

DRUGS (19)
  1. TEPMETKO [Suspect]
     Active Substance: TEPOTINIB HYDROCHLORIDE
     Indication: Lung cancer metastatic
     Route: 048
     Dates: start: 20230904, end: 20231017
  2. BISOPROLOL [Concomitant]
     Active Substance: BISOPROLOL\BISOPROLOL FUMARATE
     Indication: Product used for unknown indication
     Dosage: LUBRICATED ONE TO SEVERAL TIMES DAILY.
  3. UREA [Concomitant]
     Active Substance: UREA
     Indication: Product used for unknown indication
  4. UREA [Concomitant]
     Active Substance: UREA
     Indication: Product used for unknown indication
     Dosage: 50 MG/G
     Dates: start: 20231017
  5. SODIUM PICOSULFATE [Concomitant]
     Active Substance: SODIUM PICOSULFATE
     Indication: Product used for unknown indication
     Dosage: 10-20 DROPS AS NEEDED
     Route: 048
     Dates: start: 20230411
  6. LEVETIRACETAM [Concomitant]
     Active Substance: LEVETIRACETAM
     Indication: Product used for unknown indication
     Dates: start: 20230619
  7. HALDOL [Concomitant]
     Active Substance: HALOPERIDOL
     Indication: Product used for unknown indication
     Dosage: 5 MG/ML, SOLUTION. 0.1-0.3 ML AS NEEDED 2 TIMES DAILY
     Dates: start: 20230905
  8. METOCLOPRAMIDE [Concomitant]
     Active Substance: METOCLOPRAMIDE
     Indication: Product used for unknown indication
     Dosage: TABLET AS NEEDED, MAXIMUM 3 TABLETS PER DAY
     Dates: start: 20230905
  9. MECLIZINE HYDROCHLORIDE [Concomitant]
     Active Substance: MECLIZINE HYDROCHLORIDE
     Indication: Product used for unknown indication
     Dosage: 1 TABLET AS NEEDED, MAXIMUM 2 TABLETS PER DAY
     Dates: start: 20230905
  10. ROBINUL [Concomitant]
     Active Substance: GLYCOPYRROLATE
     Indication: Product used for unknown indication
     Dosage: 1-2 ML.
     Dates: start: 20230905
  11. LOPERAMIDE [Concomitant]
     Active Substance: LOPERAMIDE
     Indication: Product used for unknown indication
     Dosage: 1 CAPSULE AS NEEDED, MAXIMUM 8 CAPSULES PER DAY
     Dates: start: 20230905
  12. BETAPRED [Concomitant]
     Active Substance: BETAMETHASONE SODIUM PHOSPHATE
     Indication: Product used for unknown indication
     Dates: start: 20231110
  13. MIDAZOLAM HYDROCHLORIDE [Concomitant]
     Active Substance: MIDAZOLAM HYDROCHLORIDE
     Indication: Product used for unknown indication
     Dosage: OROMUCOSAL SOLUTION
  14. MORPHINE [Concomitant]
     Active Substance: MORPHINE
     Indication: Product used for unknown indication
     Dosage: TABLET 10 MG; 0,5-1 AS NEEDED. 10MG/ML; 0,25-0,5 ML AS NEEDED
     Dates: start: 20230905
  15. CEFUROXIME [Concomitant]
     Active Substance: CEFUROXIME
     Indication: Product used for unknown indication
     Dosage: 2-4ML
     Dates: start: 20230905
  16. MOVICOL [Concomitant]
     Active Substance: POLYETHYLENE GLYCOL 3350\POTASSIUM CHLORIDE\SODIUM BICARBONATE\SODIUM CHLORIDE
     Indication: Product used for unknown indication
     Dosage: POWDER FOR ORAL SOLUTION IN SACHET. 1 SACHET IF NEEDED, MAXIMUM 3 SACHETS PER DAY.
     Dates: start: 20230919
  17. OXAZEPAM [Concomitant]
     Active Substance: OXAZEPAM
     Indication: Product used for unknown indication
     Dosage: 0,5-1 TABLET AS NEEDED
     Dates: start: 20230830
  18. MIDAZOLAM [Concomitant]
     Active Substance: MIDAZOLAM
     Indication: Product used for unknown indication
     Dosage: .5-1 ML IF NEEDED IN ONE NOSTRIL 0.2-0.5 ML IF NEEDED SUBCUTANEOUS INJECTION STARTED ON 05 SEP 2023.
     Dates: start: 20230905
  19. BRICANYL [Concomitant]
     Active Substance: TERBUTALINE SULFATE
     Indication: Product used for unknown indication
     Dosage: 1-2 INHALATIONS IF NECESSARY, MAXIMUM 6 INHALATIONS PER DAY
     Dates: start: 20191219

REACTIONS (2)
  - Interstitial lung disease [Fatal]
  - Respiratory failure [Fatal]

NARRATIVE: CASE EVENT DATE: 20231017
